FAERS Safety Report 21035462 (Version 1)
Quarter: 2022Q3

REPORT INFORMATION
  Report Type: Spontaneous
  Country: JP (occurrence: None)
  Receive Date: 20220701
  Receipt Date: 20220701
  Transmission Date: 20221026
  Serious: Yes (Death, Hospitalization)
  Sender: FDA-Public Use
  Company Number: 2022A239648

PATIENT
  Age: 69 Year
  Sex: Female

DRUGS (3)
  1. LYNPARZA [Suspect]
     Active Substance: OLAPARIB
     Indication: Ovarian cancer
     Dosage: DOSE UNKNOWN
     Route: 048
  2. CARBOPLATIN [Concomitant]
     Active Substance: CARBOPLATIN
     Indication: Ovarian cancer
  3. CARBOPLATIN [Concomitant]
     Active Substance: CARBOPLATIN
     Indication: Ovarian cancer

REACTIONS (4)
  - Death [Fatal]
  - Myelodysplastic syndrome [Unknown]
  - Diarrhoea [Unknown]
  - Enterocolitis [Unknown]
